FAERS Safety Report 7752315-7 (Version None)
Quarter: 2011Q3

REPORT INFORMATION
  Report Type: 
  Country: None (occurrence: None)
  Receive Date: 20110915
  Receipt Date: 20110901
  Transmission Date: 20111222
  Serious: Yes (Hospitalization)
  Sender: FDA-Public Use
  Company Number: US-CELGENEUS-163-20785-11090230

PATIENT
  Sex: Male

DRUGS (3)
  1. THALOMID [Suspect]
     Dosage: 50 MILLIGRAM
     Route: 048
     Dates: start: 20070701
  2. THALOMID [Suspect]
     Indication: MULTIPLE MYELOMA
     Dosage: 400 MILLIGRAM
     Route: 048
     Dates: start: 20010801
  3. THALOMID [Suspect]
     Dosage: 50-100MG
     Route: 048
     Dates: start: 20010901

REACTIONS (2)
  - SYNCOPE [None]
  - ACUTE CORONARY SYNDROME [None]
